FAERS Safety Report 11892693 (Version 1)
Quarter: 2016Q1

REPORT INFORMATION
  Report Type: Spontaneous
  Country: US (occurrence: US)
  Receive Date: 20160106
  Receipt Date: 20160106
  Transmission Date: 20160526
  Serious: No
  Sender: FDA-Public Use
  Company Number: US-PFIZER INC-2015441943

PATIENT
  Age: 46 Year
  Sex: Male

DRUGS (3)
  1. GEMFIBROZIL. [Concomitant]
     Active Substance: GEMFIBROZIL
  2. LISINOPRIL. [Concomitant]
     Active Substance: LISINOPRIL
  3. SUTENT [Suspect]
     Active Substance: SUNITINIB MALATE
     Indication: NEUROENDOCRINE CARCINOMA
     Dosage: 37.5 MG CAPSULE, 1 CAPSULE, 1X/DAY
     Route: 048

REACTIONS (2)
  - Dysgeusia [Unknown]
  - Drug dose omission [Unknown]
